FAERS Safety Report 5713896-8 (Version None)
Quarter: 2008Q2

REPORT INFORMATION
  Report Type: 
  Country: None (occurrence: None)
  Receive Date: 20080422
  Receipt Date: 20080422
  Transmission Date: 20081010
  Serious: Yes (Other)
  Sender: FDA-Public Use
  Company Number: None

PATIENT
  Sex: Female
  Weight: 74.8435 kg

DRUGS (1)
  1. MAGNEVIST [Suspect]
     Indication: SPINAL OPERATION
     Dosage: 15ML 1X IV
     Route: 042
     Dates: start: 20080422

REACTIONS (1)
  - URTICARIA [None]
